FAERS Safety Report 4673976-5 (Version None)
Quarter: 2005Q2

REPORT INFORMATION
  Report Type: 
  Country: None (occurrence: None)
  Receive Date: 20050523
  Receipt Date: 20041008
  Transmission Date: 20051028
  Serious: Yes (Other)
  Sender: FDA-Public Use
  Company Number: 10063509-NA03-3

PATIENT
  Age: 22 Year
  Sex: Female

DRUGS (2)
  1. LACTATED RINGER'S [Suspect]
     Indication: THERAPEUTIC PROCEDURE
     Dosage: IV
     Route: 042
     Dates: start: 20041004, end: 20041004
  2. BETADINE [Concomitant]

REACTIONS (1)
  - HYPERSENSITIVITY [None]
